FAERS Safety Report 5164883-2 (Version None)
Quarter: 2006Q4

REPORT INFORMATION
  Report Type: 
  Country: None (occurrence: None)
  Receive Date: 20061124
  Receipt Date: 20061109
  Transmission Date: 20070319
  Serious: Yes (Hospitalization)
  Sender: FDA-Public Use
  Company Number: 232783

PATIENT
  Sex: Female

DRUGS (3)
  1. HERCEPTIN [Suspect]
     Indication: BREAST CANCER
  2. TAXOTERE [Suspect]
     Indication: BREAST CANCER
  3. ANASTROZOLE [Concomitant]

REACTIONS (2)
  - INTRACARDIAC THROMBUS [None]
  - SEPSIS [None]
